FAERS Safety Report 7720804-7 (Version None)
Quarter: 2011Q3

REPORT INFORMATION
  Report Type: 
  Country: None (occurrence: None)
  Receive Date: 20110830
  Receipt Date: 20110830
  Transmission Date: 20111222
  Serious: Yes (Death, Life-Threatening, Hospitalization, Disabling)
  Sender: FDA-Public Use
  Company Number: None

PATIENT
  Sex: Female
  Weight: 58.9676 kg

DRUGS (1)
  1. VITAMIN D [Suspect]
     Indication: BACK PAIN
     Dosage: 1 50,000 I.U. CAP 3 TIMES WEEK ORAL
     Route: 048
     Dates: start: 20090925, end: 20091002

REACTIONS (1)
  - RENAL FAILURE [None]
